FAERS Safety Report 23285275 (Version 3)
Quarter: 2024Q1

REPORT INFORMATION
  Report Type: Report from Study
  Country: JP (occurrence: None)
  Receive Date: 20231211
  Receipt Date: 20240328
  Transmission Date: 20240409
  Serious: Yes (Death, Life-Threatening, Hospitalization)
  Sender: FDA-Public Use
  Company Number: 2023A278778

PATIENT
  Age: 67 Year
  Sex: Male

DRUGS (3)
  1. IMFINZI [Suspect]
     Active Substance: DURVALUMAB
     Indication: Non-small cell lung cancer
     Route: 041
     Dates: start: 20230728, end: 20230728
  2. IMJUDO [Suspect]
     Active Substance: TREMELIMUMAB\TREMELIMUMAB-ACTL
     Indication: Non-small cell lung cancer
     Route: 041
     Dates: start: 20230728, end: 20230728
  3. PEMETREXED [Suspect]
     Active Substance: PEMETREXED
     Dates: start: 20230728, end: 20230728

REACTIONS (7)
  - Pulmonary artery thrombosis [Recovering/Resolving]
  - Venous thrombosis limb [Recovering/Resolving]
  - Malignant neoplasm progression [Fatal]
  - Quadriplegia [Not Recovered/Not Resolved]
  - Rash [Recovering/Resolving]
  - Renal disorder [Recovering/Resolving]
  - Neutropenia [Recovered/Resolved]

NARRATIVE: CASE EVENT DATE: 20230804
